FAERS Safety Report 4752814-6 (Version None)
Quarter: 2005Q3

REPORT INFORMATION
  Report Type: 
  Country: None (occurrence: None)
  Receive Date: 20050823
  Receipt Date: 20041206
  Transmission Date: 20060218
  Serious: Yes (Hospitalization)
  Sender: FDA-Public Use
  Company Number: 2004068946

PATIENT
  Age: 74 Year
  Sex: Female
  Weight: 63.5036 kg

DRUGS (6)
  1. NORVASC [Suspect]
     Indication: BLOOD PRESSURE
     Dosage: 2.5 MG (2.5 MG,1 IN 1 D), ORAL
     Route: 048
  2. CLOPIDOGREL BISULFATE [Concomitant]
  3. ACETYLSALICYLIC ACID SRT [Concomitant]
  4. METOPROLOL TARTRATE [Concomitant]
  5. PANTOPRAZOLE SODIUM [Concomitant]
  6. SIMVASTATIN [Concomitant]

REACTIONS (6)
  - BLOOD PRESSURE INCREASED [None]
  - BUTTOCK PAIN [None]
  - CERVICAL SPINAL STENOSIS [None]
  - CHEST PAIN [None]
  - PAIN IN EXTREMITY [None]
  - STRESS [None]
